FAERS Safety Report 9047843 (Version 1)
Quarter: 2013Q1

REPORT INFORMATION
  Report Type: Spontaneous
  Country: US (occurrence: US)
  Receive Date: 20130204
  Receipt Date: 20130204
  Transmission Date: 20140127
  Serious: No
  Sender: FDA-Public Use
  Company Number: US-AMGEN-USASP2013003185

PATIENT
  Age: 53 Year
  Sex: Female

DRUGS (3)
  1. ENBREL [Suspect]
     Indication: RHEUMATOID ARTHRITIS
     Dosage: 50 MG, QWK
     Dates: start: 20121129
  2. MOTRIN [Concomitant]
     Dosage: 800 MG, WITHIN A 1-2 HOURS OF THE START OF THE HEADACHE
  3. TYLENOL /00020001/ [Concomitant]
     Dosage: 500 MG, WITHIN A 1-2 HOURS OF THE START OF THE HEADACHE

REACTIONS (1)
  - Tension headache [Not Recovered/Not Resolved]
